FAERS Safety Report 17175760 (Version 1)
Quarter: 2019Q4

REPORT INFORMATION
  Report Type: Spontaneous
  Country: US (occurrence: US)
  Receive Date: 20191219
  Receipt Date: 20191219
  Transmission Date: 20200122
  Serious: No
  Sender: FDA-Public Use
  Company Number: US-AUROBINDO-AUR-APL-2019-025615

PATIENT

DRUGS (1)
  1. CITALOPRAM TABLET [Suspect]
     Active Substance: CITALOPRAM HYDROBROMIDE
     Indication: FAMILY STRESS
     Dosage: 1 DOSAGE FORM, DAILY
     Route: 065

REACTIONS (5)
  - Gait disturbance [Unknown]
  - Fatigue [Unknown]
  - Sleep disorder [Unknown]
  - Dizziness [Unknown]
  - Dry mouth [Unknown]
